FAERS Safety Report 6085277-1 (Version None)
Quarter: 2009Q1

REPORT INFORMATION
  Report Type: 
  Country: None (occurrence: None)
  Receive Date: 20090211
  Receipt Date: 20080118
  Transmission Date: 20090719
  Serious: Yes (Other)
  Sender: FDA-Public Use
  Company Number: CTI_00939_2008

PATIENT
  Sex: Male
  Weight: 74.8435 kg

DRUGS (7)
  1. ZYFLO [Suspect]
     Indication: ASTHMA
     Dosage: (600 MG QID ORAL)
     Route: 048
     Dates: start: 20061101, end: 20080117
  2. FLONASE [Concomitant]
  3. LIPITOR [Concomitant]
  4. BENICAR [Concomitant]
  5. ADVAIR HFA [Concomitant]
  6. ZYRTEC [Concomitant]
  7. ALBUTEROL [Concomitant]

REACTIONS (2)
  - ALANINE AMINOTRANSFERASE INCREASED [None]
  - ASPARTATE AMINOTRANSFERASE INCREASED [None]
